FAERS Safety Report 10150059 (Version 1)
Quarter: 2014Q2

REPORT INFORMATION
  Report Type: Spontaneous
  Country: CH (occurrence: CH)
  Receive Date: 20140502
  Receipt Date: 20140502
  Transmission Date: 20141212
  Serious: Yes (Congenital Anomaly, Other)
  Sender: FDA-Public Use
  Company Number: CH-ASTRAZENECA-2014SE28887

PATIENT
  Age: 0 Year
  Sex: Male
  Weight: 1.4 kg

DRUGS (3)
  1. SEROQUEL [Suspect]
     Indication: DEPRESSION
     Route: 064
     Dates: start: 20130911
  2. EFEXOR [Suspect]
     Indication: DEPRESSION
     Route: 064
     Dates: start: 2012
  3. EFEXOR [Suspect]
     Indication: DEPRESSION
     Route: 064
     Dates: start: 2012

REACTIONS (3)
  - Premature baby [Recovered/Resolved]
  - Premature baby [Recovered/Resolved]
  - Congenital ureteric anomaly [Unknown]
